FAERS Safety Report 9976798 (Version 1)
Quarter: 2014Q1

REPORT INFORMATION
  Report Type: Report from Study
  Country: US (occurrence: US)
  Receive Date: 20140306
  Receipt Date: 20140306
  Transmission Date: 20141002
  Serious: No
  Sender: FDA-Public Use
  Company Number: US-ABBVIE-13P-163-1166261-00

PATIENT
  Sex: Female

DRUGS (5)
  1. HUMIRA [Suspect]
     Indication: HIDRADENITIS
     Dates: start: 201302, end: 201309
  2. HUMIRA [Suspect]
     Dates: start: 201309
  3. DOXYCYCLINE [Concomitant]
     Indication: HIDRADENITIS
  4. SPIRONOLACTONE [Concomitant]
     Indication: HIDRADENITIS
  5. NECON [Concomitant]
     Indication: CONTRACEPTION

REACTIONS (3)
  - Injection site extravasation [Not Recovered/Not Resolved]
  - Injection site haemorrhage [Not Recovered/Not Resolved]
  - Drug ineffective [Not Recovered/Not Resolved]
